FAERS Safety Report 26141197 (Version 1)
Quarter: 2025Q4

REPORT INFORMATION
  Report Type: Spontaneous
  Country: US (occurrence: US)
  Receive Date: 20251210
  Receipt Date: 20251210
  Transmission Date: 20260118
  Serious: Yes (Other)
  Sender: ALVA-AMCO PHARMACAL COMPANIES, INC.
  Company Number: US-Alva-Amco Pharmacal Companies, Inc.-2190299

PATIENT
  Sex: Female

DRUGS (2)
  1. DIUREX ULTRA [Suspect]
     Active Substance: CAFFEINE
     Indication: Menstrual discomfort
  2. DIUREX ULTRA [Suspect]
     Active Substance: CAFFEINE
     Indication: Fluid retention

REACTIONS (3)
  - Product physical issue [Unknown]
  - Product commingling [Unknown]
  - Product container issue [Unknown]
